FAERS Safety Report 15454823 (Version 2)
Quarter: 2018Q4

REPORT INFORMATION
  Report Type: Spontaneous
  Country: US (occurrence: US)
  Receive Date: 20181002
  Receipt Date: 20181016
  Transmission Date: 20190204
  Serious: No
  Sender: FDA-Public Use
  Company Number: US-009507513-1809USA013293

PATIENT
  Age: 24 Year
  Sex: Female
  Weight: 67.9 kg

DRUGS (1)
  1. NEXPLANON [Suspect]
     Active Substance: ETONOGESTREL
     Indication: CONTRACEPTION
     Dosage: 1 IMPLANT, UNK
     Route: 059
     Dates: start: 20180820, end: 20180917

REACTIONS (2)
  - Implant site discharge [Unknown]
  - Implant site bruising [Unknown]

NARRATIVE: CASE EVENT DATE: 201808
